FAERS Safety Report 21710477 (Version 5)
Quarter: 2022Q4

REPORT INFORMATION
  Report Type: Spontaneous
  Country: GB (occurrence: GB)
  Receive Date: 20221212
  Receipt Date: 20221220
  Transmission Date: 20230112
  Serious: Yes (Other)
  Sender: FDA-Public Use
  Company Number: GB-JNJFOC-20221147214

PATIENT
  Age: 67 Year
  Sex: Female

DRUGS (5)
  1. IMBRUVICA [Suspect]
     Active Substance: IBRUTINIB
     Indication: Mantle cell lymphoma
     Dosage: 4 CYCLE
     Route: 048
     Dates: start: 202203
  2. RITUXIMAB [Suspect]
     Active Substance: RITUXIMAB
     Indication: Mantle cell lymphoma
     Dosage: 4 CYCLES?ADDITIONAL INFO: ROUTE:UNKNOWN
     Route: 065
     Dates: start: 202203
  3. ACALABRUTINIB [Concomitant]
     Active Substance: ACALABRUTINIB
     Indication: Mantle cell lymphoma
     Dosage: ADDITIONAL INFO: ROUTE: UNKNOWN
     Route: 050
     Dates: start: 202206
  4. OBINUTUZUMAB [Concomitant]
     Active Substance: OBINUTUZUMAB
     Indication: Mantle cell lymphoma
     Dosage: ADDITIONAL INFO: ROUTE: UNKNOWN
     Route: 050
     Dates: start: 202207
  5. VENETOCLAX [Suspect]
     Active Substance: VENETOCLAX
     Indication: Mantle cell lymphoma
     Route: 048
     Dates: start: 202207

REACTIONS (4)
  - Mantle cell lymphoma [Unknown]
  - Cholecystectomy [Unknown]
  - Chronic obstructive pulmonary disease [Unknown]
  - Cerebrovascular accident [Unknown]
